FAERS Safety Report 19087298 (Version 3)
Quarter: 2021Q4

REPORT INFORMATION
  Report Type: Report from Study
  Country: UG (occurrence: UG)
  Receive Date: 20210402
  Receipt Date: 20211230
  Transmission Date: 20220303
  Serious: Yes (Hospitalization, Other)
  Sender: FDA-Public Use
  Company Number: UG-CIPLA LTD.-2021UG02473

PATIENT

DRUGS (2)
  1. LOPINAVIR\RITONAVIR [Suspect]
     Active Substance: LOPINAVIR\RITONAVIR
     Indication: HIV infection
     Dosage: 6 DOSAGE FORM, 80/20 MG BID
     Route: 048
     Dates: start: 20171219, end: 20181120
  2. ZINC SULFATE [Concomitant]
     Active Substance: ZINC SULFATE
     Indication: Diarrhoea
     Dosage: 20 MILLIGRAM, QD
     Route: 065
     Dates: start: 20180604, end: 20180614

REACTIONS (6)
  - Bronchiolitis [Recovered/Resolved]
  - Respiratory tract infection [Recovered/Resolved]
  - Influenza [Recovered/Resolved]
  - Diarrhoea [Recovered/Resolved]
  - Rash [Recovered/Resolved]
  - Anaemia [Recovered/Resolved]

NARRATIVE: CASE EVENT DATE: 20180117
